FAERS Safety Report 6930305-1 (Version None)
Quarter: 2010Q3

REPORT INFORMATION
  Report Type: 
  Country: None (occurrence: None)
  Receive Date: 20100818
  Receipt Date: 20100804
  Transmission Date: 20110219
  Serious: Yes (Hospitalization)
  Sender: FDA-Public Use
  Company Number: PH-ROCHE-701454

PATIENT
  Sex: Female
  Weight: 51 kg

DRUGS (3)
  1. BEVACIZUMAB [Suspect]
     Indication: NON-SMALL CELL LUNG CANCER
     Dosage: 840 UNK, Q3W
     Route: 042
     Dates: start: 20080124
  2. BLINDED ERLOTINIB [Suspect]
     Indication: NON-SMALL CELL LUNG CANCER
     Dosage: 150 UNK, QD
     Route: 048
     Dates: start: 20080425
  3. BLINDED PLACEBO [Suspect]
     Indication: NON-SMALL CELL LUNG CANCER
     Dosage: 150 UNK, QD
     Route: 048
     Dates: start: 20080425

REACTIONS (1)
  - BLOOD CREATININE INCREASED [None]
